FAERS Safety Report 8098585-X (Version None)
Quarter: 2012Q1

REPORT INFORMATION
  Report Type: 
  Country: None (occurrence: None)
  Receive Date: 20120129
  Receipt Date: 20110914
  Transmission Date: 20120608
  Serious: No
  Sender: FDA-Public Use
  Company Number: US-ABBOTT-11P-163-0854950-00

PATIENT
  Age: 38 Year
  Sex: Female

DRUGS (2)
  1. HUMIRA [Suspect]
     Indication: PSORIATIC ARTHROPATHY
     Dates: start: 20110811
  2. AMITIZA [Concomitant]
     Indication: CONSTIPATION

REACTIONS (2)
  - NASOPHARYNGITIS [None]
  - BLOOD PRESSURE INCREASED [None]
